FAERS Safety Report 23895370 (Version 1)
Quarter: 2024Q2

REPORT INFORMATION
  Report Type: Spontaneous
  Country: US (occurrence: None)
  Receive Date: 20240523
  Receipt Date: 20240523
  Transmission Date: 20240716
  Serious: Yes (Other)
  Sender: FDA-Public Use
  Company Number: None

PATIENT
  Age: 43 Year
  Sex: Female
  Weight: 57.6 kg

DRUGS (1)
  1. NYSTATIN AND TRIAMCINOLONE [Suspect]
     Active Substance: NYSTATIN\TRIAMCINOLONE ACETONIDE
     Indication: Vulvovaginal mycotic infection
     Dosage: FREQUENCY : TWICE A DAY;?
     Route: 061

REACTIONS (3)
  - Wrong technique in product usage process [None]
  - Vaginal disorder [None]
  - Libido disorder [None]

NARRATIVE: CASE EVENT DATE: 20240410
